FAERS Safety Report 7376193-3 (Version None)
Quarter: 2011Q1

REPORT INFORMATION
  Report Type: 
  Country: None (occurrence: None)
  Receive Date: 20110325
  Receipt Date: 20110322
  Transmission Date: 20110831
  Serious: Yes (Death, Other)
  Sender: FDA-Public Use
  Company Number: US-AMGEN-QUU442400

PATIENT
  Age: 48 Year
  Sex: Male

DRUGS (2)
  1. NPLATE [Suspect]
     Indication: IDIOPATHIC THROMBOCYTOPENIC PURPURA
     Dosage: 95 A?G, UNK
     Dates: start: 20100312, end: 20101005
  2. IMMUNOGLOBULINS [Concomitant]
     Dosage: UNK UNK, UNK
     Dates: start: 20040101

REACTIONS (3)
  - MYELODYSPLASTIC SYNDROME [None]
  - DEATH [None]
  - LEUKAEMIA [None]
